FAERS Safety Report 6257450-0 (Version None)
Quarter: 2009Q2

REPORT INFORMATION
  Report Type: 
  Country: None (occurrence: None)
  Receive Date: 20090630
  Receipt Date: 20090630
  Transmission Date: 20091009
  Serious: Yes (Other)
  Sender: FDA-Public Use
  Company Number: None

PATIENT
  Age: 70 Year
  Sex: Male
  Weight: 81.6475 kg

DRUGS (1)
  1. PROPOFOL [Suspect]
     Indication: SEDATIVE THERAPY
     Dosage: 250MG TOTAL FOR  CASE IV  0723AM TO 0741AM
     Route: 042

REACTIONS (3)
  - CHILLS [None]
  - PAIN IN EXTREMITY [None]
  - TREMOR [None]
